FAERS Safety Report 16159891 (Version 1)
Quarter: 2019Q2

REPORT INFORMATION
  Report Type: Report from Study
  Country: CA (occurrence: CA)
  Receive Date: 20190404
  Receipt Date: 20190404
  Transmission Date: 20190711
  Serious: Yes (Life-Threatening, Hospitalization, Disabling, Other)
  Sender: FDA-Public Use
  Company Number: CA-JNJFOC-20190119811

PATIENT
  Age: 51 Year
  Sex: Male
  Weight: 71.6 kg

DRUGS (4)
  1. CODEINE [Concomitant]
     Active Substance: CODEINE
     Route: 065
  2. REMICADE [Suspect]
     Active Substance: INFLIXIMAB
     Indication: CROHN^S DISEASE
     Dosage: STRENGTH = 100 MG
     Route: 042
     Dates: start: 20021127
  3. VITAMIN D2 [Concomitant]
     Active Substance: ERGOCALCIFEROL
     Dosage: 10000 (UNITS NOT PROVIDED)
     Route: 065
  4. CITALOPRAM [Concomitant]
     Active Substance: CITALOPRAM HYDROBROMIDE
     Indication: DEPRESSION
     Route: 065

REACTIONS (4)
  - Post procedural pneumonia [Unknown]
  - Sepsis [Unknown]
  - Bacterial infection [Unknown]
  - Ileostomy [Unknown]

NARRATIVE: CASE EVENT DATE: 20181106
